FAERS Safety Report 13615646 (Version 1)
Quarter: 2017Q2

REPORT INFORMATION
  Report Type: Report from Study
  Country: US (occurrence: US)
  Receive Date: 20170606
  Receipt Date: 20170606
  Transmission Date: 20170830
  Serious: Yes (Life-Threatening)
  Sender: FDA-Public Use
  Company Number: US-BION-006365

PATIENT
  Age: 14 Year
  Sex: Female

DRUGS (7)
  1. PHENYLEPHRINE [Suspect]
     Active Substance: PHENYLEPHRINE\PHENYLEPHRINE HYDROCHLORIDE
  2. ASPIRIN. [Suspect]
     Active Substance: ASPIRIN
  3. HYOSCINE [Suspect]
     Active Substance: SCOPOLAMINE
  4. LOPERAMIDE HYDROCHLORIDE. [Suspect]
     Active Substance: LOPERAMIDE HYDROCHLORIDE
  5. MELATONIN [Suspect]
     Active Substance: MELATONIN
  6. CHLORPHENAMINE [Suspect]
     Active Substance: CHLORPHENIRAMINE MALEATE
  7. CITALOPRAM [Suspect]
     Active Substance: CITALOPRAM HYDROBROMIDE

REACTIONS (5)
  - Seizure [Unknown]
  - Tachycardia [Unknown]
  - Suicide attempt [Unknown]
  - Diarrhoea [Unknown]
  - Vomiting [Unknown]
